FAERS Safety Report 16173372 (Version 1)
Quarter: 2019Q2

REPORT INFORMATION
  Report Type: Spontaneous
  Country: US (occurrence: US)
  Receive Date: 20190408
  Receipt Date: 20190408
  Transmission Date: 20190711
  Serious: Yes (Other)
  Sender: FDA-Public Use
  Company Number: None

PATIENT
  Age: 55 Year
  Sex: Female
  Weight: 86.4 kg

DRUGS (10)
  1. LEVOTHYROXINE. [Concomitant]
     Active Substance: LEVOTHYROXINE
  2. FASENRA [Suspect]
     Active Substance: BENRALIZUMAB
     Indication: ASTHMA
     Dosage: ?          OTHER FREQUENCY:MONTHLY;?
     Route: 058
  3. PRISTIQ EXTENDED-RELEASE [Concomitant]
     Active Substance: DESVENLAFAXINE SUCCINATE
  4. DULERA [Concomitant]
     Active Substance: FORMOTEROL FUMARATE DIHYDRATE\MOMETASONE FUROATE
     Dates: start: 20181228, end: 20190408
  5. GABAPENTIN. [Concomitant]
     Active Substance: GABAPENTIN
  6. ALBUTEROL. [Concomitant]
     Active Substance: ALBUTEROL
  7. METFORMIN [Concomitant]
     Active Substance: METFORMIN HYDROCHLORIDE
  8. SPIRIVA 2.5 [Concomitant]
     Dates: start: 20181228, end: 20190408
  9. TRAMADOL. [Concomitant]
     Active Substance: TRAMADOL
  10. ESTRADIOL. [Concomitant]
     Active Substance: ESTRADIOL

REACTIONS (7)
  - Helminthic infection [None]
  - Myalgia [None]
  - Vomiting [None]
  - Malaise [None]
  - Decreased appetite [None]
  - Aphthous ulcer [None]
  - Abdominal pain [None]
